FAERS Safety Report 5029668-6 (Version None)
Quarter: 2006Q2

REPORT INFORMATION
  Report Type: 
  Country: None (occurrence: None)
  Receive Date: 20060620
  Receipt Date: 20060615
  Transmission Date: 20061013
  Serious: Yes (Death)
  Sender: FDA-Public Use
  Company Number: NL-JNJFOC-20060603565

PATIENT
  Age: 58 Year
  Sex: Male

DRUGS (5)
  1. REOPRO [Suspect]
     Indication: ANGIOPLASTY
     Route: 042
  2. TENECTAPLASE [Suspect]
     Indication: MYOCARDIAL INFARCTION
     Route: 042
  3. ASPIRIN [Concomitant]
     Route: 048
  4. CLOPIDOGREL [Concomitant]
     Indication: MYOCARDIAL ISCHAEMIA
     Dosage: 75 MG + 300 MG
     Route: 048
  5. PERINDOPRIL ERUMINE [Concomitant]
     Indication: MYOCARDIAL ISCHAEMIA
     Route: 048

REACTIONS (1)
  - CEREBRAL HAEMORRHAGE [None]
